FAERS Safety Report 8920991 (Version 5)
Quarter: 2013Q1

REPORT INFORMATION
  Report Type: Spontaneous
  Country: JP (occurrence: JP)
  Receive Date: 20121123
  Receipt Date: 20130319
  Transmission Date: 20140127
  Serious: Yes (Hospitalization, Other)
  Sender: FDA-Public Use
  Company Number: JP-AMGEN-JPNSP2012075070

PATIENT
  Age: 77 Year
  Sex: Female
  Weight: 38.2 kg

DRUGS (8)
  1. ENBREL [Suspect]
     Indication: RHEUMATOID ARTHRITIS
     Dosage: 25 MG, 2X/WEEK
     Route: 058
     Dates: start: 20090804, end: 20120910
  2. THYRADIN S [Concomitant]
     Indication: AUTOIMMUNE THYROIDITIS
     Dosage: 100 MG, 1X/DAY
  3. FOSAMAC [Concomitant]
     Indication: OSTEOPOROSIS
     Dosage: 35 MG, WEEKLY
  4. LOXONIN [Concomitant]
     Indication: RHEUMATOID ARTHRITIS
     Dosage: 60 MG, 2X/DAY
     Dates: end: 20091110
  5. MUCOSTA [Concomitant]
     Indication: PROPHYLAXIS
     Dosage: 100 MG, 2X/DAY
     Dates: end: 20091110
  6. BAKTAR [Concomitant]
     Indication: PROPHYLAXIS
     Dosage: 3 DF, WEEKLY
     Dates: start: 20090818
  7. TALION                             /01587402/ [Concomitant]
     Indication: RHINITIS ALLERGIC
     Dosage: 10 MG, 1X/DAY
     Dates: start: 20090818
  8. PROGRAF [Concomitant]
     Indication: RHEUMATOID ARTHRITIS
     Dosage: 1 MG, 1X/DAY
     Dates: start: 20100905, end: 20120910

REACTIONS (3)
  - Iron deficiency anaemia [Not Recovered/Not Resolved]
  - Granular cell tumour [Recovered/Resolved]
  - Interstitial lung disease [Recovering/Resolving]
